FAERS Safety Report 16114594 (Version 1)
Quarter: 2019Q1

REPORT INFORMATION
  Report Type: Report from Study
  Country: CA (occurrence: CA)
  Receive Date: 20190325
  Receipt Date: 20190325
  Transmission Date: 20190418
  Serious: Yes (Other)
  Sender: FDA-Public Use
  Company Number: CA-HLSUS-2019-CA-000200

PATIENT
  Age: 66 Year
  Sex: Male
  Weight: 66 kg

DRUGS (3)
  1. SINEMET [Concomitant]
     Active Substance: CARBIDOPA\LEVODOPA
     Dosage: 1.5 TABS BID
     Dates: start: 20180605
  2. CLOZARIL [Suspect]
     Active Substance: CLOZAPINE
     Indication: AGGRESSION
     Dosage: 25 MG IN THE MORNING AND 50 MG AT BEDTIME
     Route: 048
     Dates: start: 20190201, end: 20190215
  3. LOXAPINE. [Concomitant]
     Active Substance: LOXAPINE
     Indication: AGGRESSION
     Dosage: 10 MG HS AND 10 MG MORNING
     Route: 048

REACTIONS (3)
  - Salivary hypersecretion [Unknown]
  - Lower respiratory tract infection [Unknown]
  - C-reactive protein increased [Recovered/Resolved]

NARRATIVE: CASE EVENT DATE: 20190214
